FAERS Safety Report 16991815 (Version 1)
Quarter: 2019Q4

REPORT INFORMATION
  Report Type: Spontaneous
  Country: US (occurrence: US)
  Receive Date: 20190920
  Receipt Date: 20190920
  Transmission Date: 20200122
  Serious: Yes (Death)
  Sender: FDA-Public Use
  Company Number: None

PATIENT
  Age: 65 Year
  Sex: Male

DRUGS (6)
  1. DOXAZOSIN [Concomitant]
     Active Substance: DOXAZOSIN MESYLATE
  2. LYRICA [Concomitant]
     Active Substance: PREGABALIN
  3. BASAGLAR [Concomitant]
     Active Substance: INSULIN GLARGINE
  4. ALPRAZOLAM. [Concomitant]
     Active Substance: ALPRAZOLAM
  5. FUROSEMIDE. [Concomitant]
     Active Substance: FUROSEMIDE
  6. PROMACTA [Suspect]
     Active Substance: ELTROMBOPAG OLAMINE
     Indication: CROHN^S DISEASE
     Dosage: ?          OTHER FREQUENCY:1 EVERY DAY;?
     Route: 048
     Dates: start: 20180125, end: 20190812

REACTIONS (1)
  - Death [None]

NARRATIVE: CASE EVENT DATE: 20190812
